FAERS Safety Report 19049433 (Version 1)
Quarter: 2021Q1

REPORT INFORMATION
  Report Type: Spontaneous
  Country: US (occurrence: US)
  Receive Date: 20210322
  Receipt Date: 20210322
  Transmission Date: 20210420
  Serious: Yes (Life-Threatening, Hospitalization, Disabling, Other)
  Sender: FDA-Public Use
  Company Number: None

PATIENT
  Age: 71 Year
  Sex: Male
  Weight: 77.11 kg

DRUGS (12)
  1. KEYTRUDA [Suspect]
     Active Substance: PEMBROLIZUMAB
     Indication: BLADDER CANCER STAGE 0, WITH CANCER IN SITU
     Dosage: ?          QUANTITY:1 DF DOSAGE FORM;?
     Dates: start: 20200605, end: 20201030
  2. HYDROCORTISONE 10 MG [Concomitant]
  3. ROBAXIN 500MG [Concomitant]
  4. VIT. D3 [Concomitant]
  5. PANTOPROZOL 20MG [Concomitant]
  6. CALCIUM/ZINC [Concomitant]
  7. NARCO 5 [Concomitant]
  8. ATROVASTATIN 80 MG [Concomitant]
     Active Substance: ATORVASTATIN CALCIUM
  9. LEVOTHYROID 50 MCG [Concomitant]
  10. METOPROLOL 50MG [Concomitant]
     Active Substance: METOPROLOL
  11. IRON 28MG [Concomitant]
  12. B12 2500MG [Concomitant]

REACTIONS (17)
  - Nausea [None]
  - Muscle disorder [None]
  - Pallor [None]
  - Insomnia [None]
  - Gait inability [None]
  - Weight decreased [None]
  - Skin exfoliation [None]
  - Immune system disorder [None]
  - Walking aid user [None]
  - Rash [None]
  - Dyspnoea [None]
  - Arthralgia [None]
  - Fluid retention [None]
  - Asthenia [None]
  - Vomiting [None]
  - Heart rate irregular [None]
  - Near death experience [None]

NARRATIVE: CASE EVENT DATE: 20201118
